FAERS Safety Report 10449524 (Version 1)
Quarter: 2014Q3

REPORT INFORMATION
  Report Type: Spontaneous
  Country: US (occurrence: None)
  Receive Date: 20140911
  Receipt Date: 20140911
  Transmission Date: 20150326
  Serious: Yes (Disabling)
  Sender: FDA-Public Use
  Company Number: None

PATIENT
  Age: 30 Year
  Sex: Male
  Weight: 90.72 kg

DRUGS (1)
  1. CIPROFLOXACIN CIPROFLOXACIN 500 MG [Suspect]
     Active Substance: CIPROFLOXACIN
     Indication: URINARY TRACT INFECTION
     Dosage: 1 PILL/2 TIMES A DAY  TWICE DAILY TAKEN BY MOUTH
     Route: 048
     Dates: start: 20140220, end: 20140304

REACTIONS (10)
  - Joint stiffness [None]
  - Anxiety [None]
  - Sleep disorder [None]
  - Diarrhoea [None]
  - Panic attack [None]
  - Muscular weakness [None]
  - Fatigue [None]
  - Neuropathy peripheral [None]
  - Visual impairment [None]
  - Nausea [None]

NARRATIVE: CASE EVENT DATE: 20140905
